FAERS Safety Report 4390552-2 (Version None)
Quarter: 2004Q2

REPORT INFORMATION
  Report Type: 
  Country: None (occurrence: None)
  Receive Date: 20040630
  Receipt Date: 20040616
  Transmission Date: 20050107
  Serious: Yes (Hospitalization)
  Sender: FDA-Public Use
  Company Number: 04P-056-0263962-00

PATIENT
  Age: 84 Year
  Sex: Male

DRUGS (8)
  1. ISOPTIN [Suspect]
     Indication: DRUG USE FOR UNKNOWN INDICATION
     Dosage: 240 MG, 1 IN 1 D, PER ORAL
     Route: 048
     Dates: start: 20020615, end: 20040517
  2. PERINDOPRIL-INDAPAMIDE [Suspect]
     Indication: CARDIOMYOPATHY
     Dosage: 1 DOSAGE FORMS, 1 IN 1 D, PER ORAL
     Route: 048
     Dates: end: 20040517
  3. CLOPIDOGREL [Suspect]
     Indication: CARDIOMYOPATHY
     Dosage: 1 DOSAGE FORMS, 1 IN 1 D, PER ORAL
     Route: 048
     Dates: end: 20040517
  4. ACETAMINOPHEN AND CODEINE PHOSPHATE [Suspect]
     Indication: CARDIOMYOPATHY
     Dosage: 3 DOSAGE FORMS, 1 IN 1 D, PER ORAL
     Route: 048
     Dates: end: 20040517
  5. FUROSEMIDE [Concomitant]
  6. VITAMIN B1 AND B6 [Concomitant]
  7. RISPERIDONE [Concomitant]
  8. SACCHAROMYCES BOULARDII [Concomitant]

REACTIONS (10)
  - BLOOD CREATININE DECREASED [None]
  - BLOOD POTASSIUM DECREASED [None]
  - BLOOD UREA DECREASED [None]
  - DEHYDRATION [None]
  - HYPERCREATININAEMIA [None]
  - HYPERURICAEMIA [None]
  - IATROGENIC INJURY [None]
  - RENAL FAILURE [None]
  - URETHRAL STRICTURE [None]
  - URINARY INCONTINENCE [None]
